FAERS Safety Report 5489980-3 (Version None)
Quarter: 2007Q4

REPORT INFORMATION
  Report Type: 
  Country: None (occurrence: None)
  Receive Date: 20071018
  Receipt Date: 20071008
  Transmission Date: 20080405
  Serious: No
  Sender: FDA-Public Use
  Company Number: US-BAXTER-2007BH008302

PATIENT

DRUGS (1)
  1. TISSUCOL/TISSEEL KIT STIM4 [Suspect]
     Indication: VENOUS HAEMORRHAGE
     Dosage: DOSE UNIT:UNKNOWN
     Route: 065

REACTIONS (1)
  - CEREBRAL INFARCTION [None]
